FAERS Safety Report 5135803-1 (Version None)
Quarter: 2006Q4

REPORT INFORMATION
  Report Type: 
  Country: None (occurrence: None)
  Receive Date: 20061020
  Receipt Date: 20061006
  Transmission Date: 20070319
  Serious: Yes (Other)
  Sender: FDA-Public Use
  Company Number: HQWYE795009OCT06

PATIENT
  Age: 50 Year
  Sex: Female

DRUGS (14)
  1. PREMARIN [Suspect]
     Indication: MENOPAUSE
     Dosage: SEE IMAGE
     Route: 048
     Dates: start: 19740101, end: 19940101
  2. PREMARIN [Suspect]
     Indication: MENOPAUSE
     Dosage: SEE IMAGE
     Route: 048
     Dates: start: 20060825, end: 20060915
  3. PREMARIN [Suspect]
     Indication: MENOPAUSE
     Dosage: SEE IMAGE
     Route: 048
     Dates: start: 20060916
  4. LYRICA [Concomitant]
  5. LORAZEPAM [Concomitant]
  6. PREVACID [Concomitant]
  7. AMBIEN [Concomitant]
  8. CYMBALTA [Concomitant]
  9. MOBIC [Concomitant]
  10. QUININE SULFATE [Concomitant]
  11. EVOXAC [Concomitant]
  12. TOPROL-XL [Concomitant]
  13. ZETIA [Concomitant]
  14. MICARDIS [Concomitant]

REACTIONS (5)
  - BREAST MASS [None]
  - HOT FLUSH [None]
  - HYPERHIDROSIS [None]
  - LUNG NEOPLASM MALIGNANT [None]
  - MAMMOGRAM ABNORMAL [None]
